FAERS Safety Report 10430505 (Version 2)
Quarter: 2014Q4

REPORT INFORMATION
  Report Type: Report from Study
  Country: US (occurrence: US)
  Receive Date: 20140904
  Receipt Date: 20141026
  Transmission Date: 20150528
  Serious: Yes (Hospitalization)
  Sender: FDA-Public Use
  Company Number: PHEH2014US017449

PATIENT
  Sex: Female

DRUGS (1)
  1. EXTAVIA [Suspect]
     Active Substance: INTERFERON BETA-1B
     Indication: MULTIPLE SCLEROSIS
     Dosage: 0.25 MG (1 ML), QOD
     Route: 058
     Dates: start: 201403

REACTIONS (3)
  - Large intestinal obstruction [Recovering/Resolving]
  - Intestinal obstruction [Recovering/Resolving]
  - Urinary tract infection [Recovering/Resolving]
